FAERS Safety Report 8826001 (Version 2)
Quarter: 2018Q1

REPORT INFORMATION
  Report Type: Report from Study
  Country: CA (occurrence: CA)
  Receive Date: 20121005
  Receipt Date: 20180218
  Transmission Date: 20180509
  Serious: Yes (Other)
  Sender: FDA-Public Use
  Company Number: CA-ROCHE-1135191

PATIENT
  Sex: Female
  Weight: 59 kg

DRUGS (6)
  1. RITUXAN [Suspect]
     Active Substance: RITUXIMAB
     Indication: POLYMYOSITIS
     Route: 042
     Dates: start: 20120105
  2. ACTONEL [Concomitant]
     Active Substance: RISEDRONATE SODIUM
  3. GLUCAGON. [Concomitant]
     Active Substance: GLUCAGON
  4. DIOVAN [Concomitant]
     Active Substance: VALSARTAN
  5. PREDNISONE. [Concomitant]
     Active Substance: PREDNISONE
  6. METFORMIN [Concomitant]
     Active Substance: METFORMIN HYDROCHLORIDE
     Route: 065

REACTIONS (2)
  - Weight decreased [Unknown]
  - Blood potassium increased [Not Recovered/Not Resolved]
